FAERS Safety Report 6413012-3 (Version None)
Quarter: 2009Q4

REPORT INFORMATION
  Report Type: 
  Country: None (occurrence: None)
  Receive Date: 20091023
  Receipt Date: 20091023
  Transmission Date: 20100525
  Serious: Yes (Other)
  Sender: FDA-Public Use
  Company Number: None

PATIENT
  Age: 14 Year
  Sex: Female
  Weight: 52.1637 kg

DRUGS (1)
  1. AMBIEN [Suspect]
     Dosage: 10 MG QHS PO
     Route: 048
     Dates: start: 20090922

REACTIONS (4)
  - DRUG INTOLERANCE [None]
  - INITIAL INSOMNIA [None]
  - MIDDLE INSOMNIA [None]
  - PRODUCT SUBSTITUTION ISSUE [None]
